FAERS Safety Report 6065635-1 (Version None)
Quarter: 2009Q1

REPORT INFORMATION
  Report Type: 
  Country: None (occurrence: None)
  Receive Date: 20090130
  Receipt Date: 20090115
  Transmission Date: 20090719
  Serious: Yes (Other)
  Sender: FDA-Public Use
  Company Number: 2009S1000939

PATIENT
  Age: 46 Year
  Sex: Female

DRUGS (61)
  1. CLARITHROMYCIN [Suspect]
     Indication: LOWER RESPIRATORY TRACT INFECTION
     Dosage: 500 MG; ORAL
     Route: 048
     Dates: start: 20081128, end: 20081130
  2. AMOXICILLIN [Concomitant]
  3. FLUTICASONE PROPIONATE [Concomitant]
  4. MONTELUKAST SODIUM [Concomitant]
  5. PREDNISOLONE [Concomitant]
  6. SALBUTAMOL (SALBUTAMOL) [Concomitant]
  7. AMOXICILLIN [Concomitant]
  8. BECLOMETHASONE DIPROPIONATE (BECLOMETHASONE DIPROPIONATE) [Concomitant]
  9. BECONASE AQUEOUS (BECLOMETASONE DIPROPIONATE) [Concomitant]
  10. BETADINE /00080001/ (POVIDONE-IODINE) [Concomitant]
  11. BETAMETHASONE VALERATE [Concomitant]
  12. CETIRIZINE HCL [Concomitant]
  13. CHLORPHENIRAMINE MALEATE [Concomitant]
  14. CIPROFLOXACIN [Concomitant]
  15. CLARITHROMYCIN [Concomitant]
  16. AMOXICILLIN + CLAVULANATE POTASSIUM [Concomitant]
  17. CODEINE PHOSPHATE (CODEINE PHOSPHATE) [Concomitant]
  18. CO-DYDRAMOL (PARAMOL-118) [Concomitant]
  19. CONOTRANE /00604301/ (CONOTRANE /00604301/) [Concomitant]
  20. CROTAMITON (CROTAMITON) [Concomitant]
  21. DIPROBASE /01007601/ (PARAFFIN) [Concomitant]
  22. ERYTHROMYCIN [Concomitant]
  23. FERROUS SULPHATE (FERROUS SULFATE) [Concomitant]
  24. FLOXACILLIN SODIUM [Concomitant]
  25. FLUTICASONE PROPIONATE [Concomitant]
  26. HYDROCORTISONE (HYDROCORTISONE) [Concomitant]
  27. IBUPROFEN TABLETS [Concomitant]
  28. INFLUVAC /00027001/ (INFLUENZA VIRUS VACCINE POLYVALENT) [Concomitant]
  29. ITRACONAZOLE [Concomitant]
  30. CLARITHROMYCIN [Concomitant]
  31. LORATADINE [Concomitant]
  32. MALATHION [Concomitant]
  33. MARVELON (MARVELON) [Concomitant]
  34. MEFENAMIC ACID [Concomitant]
  35. METRONIDAZOLE [Concomitant]
  36. MICONAZOLE [Concomitant]
  37. MICROGYNON (EUGYNON /00022701/) [Concomitant]
  38. NYSTAN (NYSTATIN) [Concomitant]
  39. NYSTATIN [Concomitant]
  40. PAROXETINE HCL [Concomitant]
  41. PENICILLIN (PHENOXYMETHYLPENICILLIN) [Concomitant]
  42. PHENOXYMETHYLPENICILLIN [Concomitant]
  43. PNEUMOVAX II /00496601/ (PNEUMOCOCCAL VACCINE) [Concomitant]
  44. PREDNISOLONE [Concomitant]
  45. PREGADAY (PREGAMAL) [Concomitant]
  46. PROCHLORPERAZINE MALEATE (PROCHLORPERAZINE MALEATE) [Concomitant]
  47. SALBUTAMOL (SALBUTAMOL) [Concomitant]
  48. SALMETEROL XINAFOATE (SALMETEROL XINAFOATE) [Concomitant]
  49. SCHERING PC4 (EUGYNON /00022701/) [Concomitant]
  50. SERETIDE (SERETIDE /01420901/) [Concomitant]
  51. SEREVENT [Concomitant]
  52. PAROXETINE HCL [Concomitant]
  53. SINGULAIR /01362601/ (MONTELUKAST) [Concomitant]
  54. SODIUM CROMOGLICATE (CROMOGLICATE SODIUM) [Concomitant]
  55. THEOPHYLLINE [Concomitant]
  56. TIMODINE /00446501/ (TIMODINE /00446501/) [Concomitant]
  57. TRAZODONE HCL [Concomitant]
  58. VELOSEF /00338001/ (CEFRADINE) [Concomitant]
  59. VENTOLIN [Concomitant]
  60. ZOPICLONE (ZOPICLONE) [Concomitant]
  61. SALMETEROL (SALMETEROL) [Concomitant]

REACTIONS (1)
  - DYSPNOEA [None]
